FAERS Safety Report 12294517 (Version 1)
Quarter: 2016Q2

REPORT INFORMATION
  Report Type: Spontaneous
  Country: IT (occurrence: IT)
  Receive Date: 20160422
  Receipt Date: 20160422
  Transmission Date: 20160815
  Serious: Yes (Other)
  Sender: FDA-Public Use
  Company Number: IT-AMGEN-ITASP2016049305

PATIENT
  Age: 76 Year
  Sex: Female

DRUGS (5)
  1. TORVAST [Concomitant]
     Active Substance: ATORVASTATIN
     Dosage: UNK
     Route: 065
  2. PROLIA [Suspect]
     Active Substance: DENOSUMAB
     Indication: PRODUCT USED FOR UNKNOWN INDICATION
     Dosage: UNK
     Route: 065
     Dates: start: 20130101, end: 20160101
  3. QUARK [Concomitant]
     Active Substance: RAMIPRIL
     Dosage: UNK
     Route: 065
  4. RYTMONORM [Concomitant]
     Active Substance: PROPAFENONE
     Dosage: UNK
     Route: 065
  5. PEPTAZOL                           /01159001/ [Concomitant]
     Dosage: UNK
     Route: 065

REACTIONS (1)
  - Osteonecrosis of jaw [Unknown]

NARRATIVE: CASE EVENT DATE: 20160101
